FAERS Safety Report 4905132-7 (Version None)
Quarter: 2006Q1

REPORT INFORMATION
  Report Type: 
  Country: None (occurrence: None)
  Receive Date: 20060208
  Receipt Date: 20051019
  Transmission Date: 20060701
  Serious: No
  Sender: FDA-Public Use
  Company Number: US-GLAXOSMITHKLINE-A0582879A

PATIENT
  Age: 46 Year
  Sex: Male

DRUGS (4)
  1. PAROXETINE HCL [Suspect]
     Indication: DEPRESSION
     Dosage: 40MG PER DAY
     Route: 048
     Dates: start: 20050901
  2. PAXIL [Suspect]
     Indication: DEPRESSION
     Dosage: 40MG PER DAY
     Route: 048
  3. WELLBUTRIN [Concomitant]
  4. TRAZODONE [Concomitant]

REACTIONS (4)
  - ABDOMINAL PAIN UPPER [None]
  - CONFUSIONAL STATE [None]
  - DIZZINESS [None]
  - DRUG WITHDRAWAL SYNDROME [None]
